FAERS Safety Report 6142256-3 (Version None)
Quarter: 2009Q2

REPORT INFORMATION
  Report Type: 
  Country: None (occurrence: None)
  Receive Date: 20090403
  Receipt Date: 20070925
  Transmission Date: 20091009
  Serious: Yes (Death, Hospitalization, Other)
  Sender: FDA-Public Use
  Company Number: US-ASTRAZENECA-2006UW08379

PATIENT
  Age: 24439 Day
  Sex: Female
  Weight: 40.8 kg

DRUGS (22)
  1. SEROQUEL [Suspect]
     Indication: SCHIZOPHRENIA
     Route: 048
     Dates: start: 20000101, end: 20030101
  2. SEROQUEL [Suspect]
     Indication: DEPRESSION
     Route: 048
     Dates: start: 20000101, end: 20030101
  3. SEROQUEL [Suspect]
     Dosage: 25-200MG
     Route: 048
     Dates: start: 20020314
  4. SEROQUEL [Suspect]
     Dosage: 25-200MG
     Route: 048
     Dates: start: 20020314
  5. SULAR [Concomitant]
  6. PROTONIX [Concomitant]
  7. EXELON [Concomitant]
  8. ARICEPT [Concomitant]
  9. DEXATRIM [Concomitant]
     Indication: WEIGHT CONTROL
  10. MYLAN [Concomitant]
  11. CIPROFLOXACIN [Concomitant]
  12. LEVAQUIN [Concomitant]
  13. ACCUZYME [Concomitant]
  14. BACTRIM [Concomitant]
  15. SANTYL [Concomitant]
  16. SURFAK [Concomitant]
  17. HYDROCHLOROTHIAZIDE [Concomitant]
  18. NORVASC [Concomitant]
  19. VANCOMYCIN HCL [Concomitant]
  20. DEMEROL [Concomitant]
  21. NOVOLIN [Concomitant]
  22. GLYBURIDE [Concomitant]

REACTIONS (13)
  - ABDOMINAL PAIN [None]
  - ANAEMIA [None]
  - CHEST PAIN [None]
  - COLON ADENOMA [None]
  - COLONIC POLYP [None]
  - DEATH [None]
  - DECUBITUS ULCER [None]
  - DIABETES MELLITUS [None]
  - FEMUR FRACTURE [None]
  - HIATUS HERNIA [None]
  - HYPERTROPHIC SCAR [None]
  - RECTAL HAEMORRHAGE [None]
  - URINARY TRACT INFECTION [None]
